FAERS Safety Report 4528180-8 (Version None)
Quarter: 2004Q4

REPORT INFORMATION
  Report Type: 
  Country: None (occurrence: None)
  Receive Date: 20041215
  Receipt Date: 20030708
  Transmission Date: 20050328
  Serious: Yes (Hospitalization, Disabling, Other)
  Sender: FDA-Public Use
  Company Number: US-MERCK-0307USA00873

PATIENT
  Age: 51 Year
  Sex: Male
  Weight: 89 kg

DRUGS (4)
  1. VIOXX [Suspect]
     Indication: SPONDYLITIS
     Route: 048
     Dates: start: 20010620, end: 20020301
  2. VIOXX [Suspect]
     Indication: PAIN
     Route: 048
     Dates: start: 20010620, end: 20020301
  3. TYLENOL (CAPLET) [Concomitant]
     Route: 065
  4. ASPIRIN [Concomitant]
     Route: 065

REACTIONS (29)
  - ACUTE MYOCARDIAL INFARCTION [None]
  - ANXIETY [None]
  - ARTERIAL INJURY [None]
  - ARTHRITIS [None]
  - BLOOD CHOLESTEROL INCREASED [None]
  - CARDIOMYOPATHY [None]
  - CHEST PAIN [None]
  - CORONARY ARTERY DISEASE [None]
  - CORONARY ARTERY OCCLUSION [None]
  - DEPRESSION [None]
  - DEVICE FAILURE [None]
  - DIARRHOEA [None]
  - DIZZINESS POSTURAL [None]
  - DYSLIPIDAEMIA [None]
  - DYSPEPSIA [None]
  - EJECTION FRACTION DECREASED [None]
  - FATIGUE [None]
  - GASTRIC DISORDER [None]
  - GASTROOESOPHAGEAL REFLUX DISEASE [None]
  - HYPERTENSION [None]
  - HYPOTENSION [None]
  - INSOMNIA [None]
  - JOINT SWELLING [None]
  - LIVER DISORDER [None]
  - POST PROCEDURAL COMPLICATION [None]
  - PYELONEPHRITIS [None]
  - PYREXIA [None]
  - URINARY TRACT INFECTION [None]
  - VISION BLURRED [None]
